FAERS Safety Report 18108970 (Version 4)
Quarter: 2020Q4

REPORT INFORMATION
  Report Type: Spontaneous
  Country: US (occurrence: US)
  Receive Date: 20200804
  Receipt Date: 20201015
  Transmission Date: 20210113
  Serious: No
  Sender: FDA-Public Use
  Company Number: US-PFIZER INC-2020214472

PATIENT
  Age: 49 Year
  Sex: Female

DRUGS (7)
  1. BRAFTOVI [Suspect]
     Active Substance: ENCORAFENIB
     Dosage: 300 MG, 1X/DAY
     Dates: start: 20200407
  2. MEKTOVI [Suspect]
     Active Substance: BINIMETINIB
     Dosage: 45 MG, 2X/DAY
     Dates: start: 20200407
  3. MEKTOVI [Suspect]
     Active Substance: BINIMETINIB
     Dosage: 45 MG, DAILY
     Dates: start: 20200501
  4. BRAFTOVI [Suspect]
     Active Substance: ENCORAFENIB
     Dosage: 450 MG, 1X/DAY
     Dates: start: 20200501
  5. MEKTOVI [Suspect]
     Active Substance: BINIMETINIB
     Indication: MALIGNANT MELANOMA
     Dosage: 45 MG, 2X/DAY (TAKE 3 TABLETS BY MOUTH TWICE DAILY)
     Route: 048
     Dates: start: 20200403, end: 20200403
  6. MEKTOVI [Suspect]
     Active Substance: BINIMETINIB
     Dosage: 75 MG, 2X/DAY
     Dates: start: 20200407
  7. BRAFTOVI [Suspect]
     Active Substance: ENCORAFENIB
     Indication: MALIGNANT MELANOMA
     Dosage: 450 MG, 1X/DAY (TAKE 6 CAPSULES BY MOUTH ONCE DAILY)
     Route: 048
     Dates: start: 20200403, end: 20200403

REACTIONS (1)
  - Cardiac disorder [Unknown]
